FAERS Safety Report 9194156 (Version 1)
Quarter: 2013Q1

REPORT INFORMATION
  Report Type: Spontaneous
  Country: US (occurrence: US)
  Receive Date: 20130327
  Receipt Date: 20130327
  Transmission Date: 20140127
  Serious: Yes (Other)
  Sender: FDA-Public Use
  Company Number: CHPA2012US023113

PATIENT
  Sex: Female

DRUGS (7)
  1. EXCEDRIN EXTRA STRENGTH [Suspect]
     Indication: BACK PAIN
     Dosage: 1 TO 2 DF, ONCE OR TWICE A DAY
     Route: 048
  2. EXCEDRIN EXTRA STRENGTH [Suspect]
     Indication: ARTHRALGIA
     Dosage: 2 DF, PRN
     Route: 048
  3. EXCEDRIN ES BACK + BODY [Suspect]
     Indication: SINUSITIS
     Dosage: 1 TO 2 DF, 1 TO 2 TIMES PER DAY
     Route: 048
  4. EXCEDRIN ES BACK + BODY [Suspect]
     Indication: COUGH
  5. EXCEDRIN ES BACK + BODY [Suspect]
     Indication: DIZZINESS
  6. EXCEDRIN ES BACK + BODY [Suspect]
     Indication: PAIN
  7. ANTIHYPERTENSIVES [Concomitant]
     Dosage: UNK
     Dates: start: 201212

REACTIONS (10)
  - Abasia [Recovered/Resolved]
  - Back injury [Recovered/Resolved]
  - Sinusitis [Recovered/Resolved]
  - Laceration [Recovered/Resolved]
  - Cough [Recovered/Resolved]
  - Dizziness [Recovered/Resolved]
  - Fall [Recovered/Resolved]
  - Malaise [Unknown]
  - Pain in extremity [Recovered/Resolved]
  - Underdose [Unknown]
